FAERS Safety Report 5090694-2 (Version None)
Quarter: 2006Q3

REPORT INFORMATION
  Report Type: 
  Country: None (occurrence: None)
  Receive Date: 20060817
  Receipt Date: 20060727
  Transmission Date: 20061208
  Serious: Yes (Other)
  Sender: FDA-Public Use
  Company Number: 2006BH011814

PATIENT
  Age: 51 Year
  Sex: Male
  Weight: 52 kg

DRUGS (15)
  1. ADVATE (OCTOCOG ALFA) [Suspect]
     Indication: HAEMOPHILIA
     Dosage: 3000 IU; AS NEEDED; IV
     Route: 042
     Dates: start: 20050707, end: 20051002
  2. ADVATE (OCTOCOG ALFA) [Suspect]
     Indication: HAEMOPHILIA
     Dosage: 3000 IU; AS NEEDED; IV
     Route: 042
     Dates: start: 20051206, end: 20060125
  3. ADVATE (OCTOCOG ALFA) [Suspect]
     Indication: HAEMOPHILIA
     Dosage: 3000 IU; AS NEEDED; IV
     Route: 042
     Dates: start: 20060205, end: 20060329
  4. ADVATE (OCTOCOG ALFA) [Suspect]
     Indication: HAEMOPHILIA
     Dosage: 3000 IU; AS NEEDED; IV
     Route: 042
     Dates: start: 20060502, end: 20060531
  5. ADVATE (OCTOCOG ALFA) [Suspect]
     Indication: HAEMOPHILIA
     Dosage: 3000 IU; AS NEEDED; IV
     Route: 042
     Dates: start: 20060719, end: 20060719
  6. ADVATE (OCTOCOG ALFA) [Suspect]
  7. ADVATE (OCTOCOG ALFA) [Suspect]
  8. ADVATE (OCTOCOG ALFA) [Suspect]
  9. ADVATE (OCTOCOG ALFA) [Suspect]
  10. COMBIVIR [Concomitant]
  11. CRIXIVAN [Concomitant]
  12. DAFLON [Concomitant]
  13. FLAGYL [Concomitant]
  14. DORALIN [Concomitant]
  15. MEBEVERINE HYDROCHLORIDE [Concomitant]

REACTIONS (3)
  - ANTI FACTOR VIII ANTIBODY POSITIVE [None]
  - HAEMORRHAGE [None]
  - HAEMORRHOIDS [None]
